FAERS Safety Report 14334378 (Version 1)
Quarter: 2017Q4

REPORT INFORMATION
  Report Type: Spontaneous
  Country: NO (occurrence: NO)
  Receive Date: 20171228
  Receipt Date: 20171228
  Transmission Date: 20180321
  Serious: Yes (Other)
  Sender: FDA-Public Use
  Company Number: NO-SA-2017SA256912

PATIENT
  Age: 29 Year
  Sex: Male

DRUGS (10)
  1. HALDOL [Suspect]
     Active Substance: HALOPERIDOL
     Indication: INSOMNIA
     Route: 065
  2. CIRCADIN [Suspect]
     Active Substance: MELATONIN
     Indication: INSOMNIA
     Route: 065
  3. SOBRIL [Suspect]
     Active Substance: OXAZEPAM
     Indication: INSOMNIA
     Route: 065
  4. ATARAX [Suspect]
     Active Substance: HYDROXYZINE HYDROCHLORIDE
     Indication: INSOMNIA
     Route: 065
  5. APODORM [Suspect]
     Active Substance: NITRAZEPAM
     Indication: INSOMNIA
     Route: 065
  6. SEROQUEL [Suspect]
     Active Substance: QUETIAPINE FUMARATE
     Indication: INSOMNIA
     Route: 065
  7. STILNOCT [Suspect]
     Active Substance: ZOLPIDEM TARTRATE
     Indication: INSOMNIA
     Route: 048
  8. IMOVANE [Suspect]
     Active Substance: ZOPICLONE
     Indication: INSOMNIA
     Route: 048
  9. CIRCADIN [Suspect]
     Active Substance: MELATONIN
     Indication: INSOMNIA
     Route: 065
  10. VALIUM [Suspect]
     Active Substance: DIAZEPAM
     Indication: INSOMNIA
     Route: 065

REACTIONS (9)
  - Hypertension [Unknown]
  - Blood cholesterol increased [Unknown]
  - Vomiting [Unknown]
  - Weight increased [Unknown]
  - Sleep apnoea syndrome [Unknown]
  - Memory impairment [Unknown]
  - Overdose [Unknown]
  - Drug abuse [Unknown]
  - Drug dependence [Unknown]
